FAERS Safety Report 7177452-X (Version None)
Quarter: 2010Q4

REPORT INFORMATION
  Report Type: 
  Country: None (occurrence: None)
  Receive Date: 20101216
  Receipt Date: 20101216
  Transmission Date: 20110411
  Serious: Yes (Life-Threatening, Hospitalization)
  Sender: FDA-Public Use
  Company Number: None

PATIENT
  Age: 59 Year
  Sex: Male
  Weight: 83.9 kg

DRUGS (2)
  1. QUETIAPINE [Suspect]
     Indication: INSOMNIA
     Dosage: 25 MG PM PO
     Route: 048
     Dates: start: 20100123, end: 20101012
  2. CIPROFLAXACIN [Suspect]
     Dosage: 750 MG QWEEK PO
     Route: 048
     Dates: start: 20100826, end: 20101012

REACTIONS (3)
  - LOSS OF CONSCIOUSNESS [None]
  - PALPITATIONS [None]
  - PULSE ABSENT [None]
